FAERS Safety Report 5893735-5 (Version None)
Quarter: 2008Q3

REPORT INFORMATION
  Report Type: 
  Country: None (occurrence: None)
  Receive Date: 20080918
  Receipt Date: 20080909
  Transmission Date: 20090109
  Serious: Yes (Life-Threatening, Hospitalization)
  Sender: FDA-Public Use
  Company Number: 002060

PATIENT
  Age: 13 Year
  Sex: Female

DRUGS (8)
  1. BUSULFEX [Suspect]
     Indication: STEM CELL TRANSPLANT
     Dosage: 21.92 ML, INTRAVENOUS
     Route: 042
     Dates: start: 20070725, end: 20070727
  2. MELPHALAN (MELPHALAN) [Concomitant]
  3. VALPROATE SODIUM [Concomitant]
  4. FILGRASTIM (FILGRASTIM) [Concomitant]
  5. LENOGRASTIM (LENOGRASTIM) [Concomitant]
  6. CYCLOSPORINE [Concomitant]
  7. TACROLIMUS [Concomitant]
  8. METHYLPREDNISOLONE [Concomitant]

REACTIONS (16)
  - ACUTE GRAFT VERSUS HOST DISEASE [None]
  - ANOREXIA [None]
  - BLOOD ALBUMIN DECREASED [None]
  - BONE MARROW TRANSPLANT REJECTION [None]
  - CYSTITIS HAEMORRHAGIC [None]
  - DIARRHOEA [None]
  - DYSPHAGIA [None]
  - HEPATIC ENZYME INCREASED [None]
  - MALAISE [None]
  - NAUSEA [None]
  - OESOPHAGITIS [None]
  - SEPSIS [None]
  - STOMATITIS [None]
  - VOMITING [None]
  - WEIGHT INCREASED [None]
  - WHITE BLOOD CELL COUNT DECREASED [None]
